FAERS Safety Report 8484701-4 (Version None)
Quarter: 2012Q3

REPORT INFORMATION
  Report Type: 
  Country: None (occurrence: None)
  Receive Date: 20120703
  Receipt Date: 20120508
  Transmission Date: 20120928
  Serious: No
  Sender: FDA-Public Use
  Company Number: US-TEVA-337198USA

PATIENT
  Sex: Male
  Weight: 89.892 kg

DRUGS (5)
  1. ATENOLOL [Concomitant]
     Indication: CARDIAC DISORDER
     Route: 048
  2. NUVIGIL [Suspect]
     Indication: CIRCADIAN RHYTHM SLEEP DISORDER
     Route: 048
     Dates: start: 20090101
  3. WARFARIN SODIUM [Concomitant]
     Indication: COAGULOPATHY
     Route: 048
  4. AMLODIPINE [Concomitant]
     Indication: ARRHYTHMIA
     Route: 048
  5. FISH OIL [Concomitant]
     Route: 048

REACTIONS (1)
  - DRUG TOLERANCE [None]
